FAERS Safety Report 14879244 (Version 4)
Quarter: 2020Q3

REPORT INFORMATION
  Report Type: Spontaneous
  Country: US (occurrence: US)
  Receive Date: 20180511
  Receipt Date: 20190130
  Transmission Date: 20201104
  Serious: Yes (Other)
  Sender: FDA-Public Use
  Company Number: US-CIPLA (EU) LIMITED-2018US17674

PATIENT

DRUGS (5)
  1. IRINOTECAN [Suspect]
     Active Substance: IRINOTECAN
     Indication: GLIOMA
     Dosage: UNK
     Route: 065
  2. CARBOPLATIN. [Suspect]
     Active Substance: CARBOPLATIN
     Indication: GLIOMA
     Dosage: UNK
     Route: 065
  3. VINCRISTINE [Suspect]
     Active Substance: VINCRISTINE
     Indication: GLIOMA
     Dosage: UNK
     Route: 065
  4. BEVACIZUMAB. [Suspect]
     Active Substance: BEVACIZUMAB
     Indication: GLIOMA
     Dosage: UNK
     Route: 065
  5. SELUMETINIB. [Suspect]
     Active Substance: SELUMETINIB
     Indication: GLIOMA
     Dosage: 20 MG, BID (25 MG/M^2/DOSE)
     Route: 048

REACTIONS (1)
  - Malignant neoplasm progression [Unknown]
